FAERS Safety Report 24022300 (Version 2)
Quarter: 2024Q2

REPORT INFORMATION
  Report Type: Spontaneous
  Country: AR (occurrence: AR)
  Receive Date: 20240627
  Receipt Date: 20240627
  Transmission Date: 20240715
  Serious: No
  Sender: FDA-Public Use
  Company Number: AR-ROCHE-3514611

PATIENT

DRUGS (2)
  1. ROZLYTREK [Suspect]
     Active Substance: ENTRECTINIB
     Indication: Gene mutation
     Route: 065
  2. ROZLYTREK [Suspect]
     Active Substance: ENTRECTINIB
     Route: 065

REACTIONS (1)
  - Skin reaction [Unknown]
